FAERS Safety Report 24715619 (Version 2)
Quarter: 2025Q3

REPORT INFORMATION
  Report Type: Report from Study
  Country: US (occurrence: US)
  Receive Date: 20241210
  Receipt Date: 20250803
  Transmission Date: 20251021
  Serious: Yes (Hospitalization, Other)
  Sender: ALEXION PHARMACEUTICALS
  Company Number: US-AstraZeneca-2023A174471

PATIENT
  Sex: Female

DRUGS (2)
  1. OLAPARIB [Suspect]
     Active Substance: OLAPARIB
     Indication: Breast cancer
     Dosage: 100 MILLIGRAM, BID
     Dates: start: 201401
  2. OLAPARIB [Suspect]
     Active Substance: OLAPARIB
     Indication: Ovarian cancer

REACTIONS (5)
  - Intestinal obstruction [Unknown]
  - Headache [Unknown]
  - Bone pain [Unknown]
  - Product dose omission issue [Recovered/Resolved]
  - Underdose [Unknown]
